FAERS Safety Report 9636654 (Version 1)
Quarter: 2013Q4

REPORT INFORMATION
  Report Type: Spontaneous
  Country: US (occurrence: US)
  Receive Date: 20131021
  Receipt Date: 20131021
  Transmission Date: 20140711
  Serious: Yes (Other)
  Sender: FDA-Public Use
  Company Number: US-ROCHE-1290452

PATIENT
  Sex: Female

DRUGS (6)
  1. XOLAIR [Suspect]
     Indication: PRODUCT USED FOR UNKNOWN INDICATION
     Route: 065
  2. SINGULAR [Concomitant]
  3. ADVAIR [Concomitant]
  4. PREDNISONE [Concomitant]
  5. SALBUTAMOL [Concomitant]
  6. ERGOCALCIFEROL [Concomitant]

REACTIONS (1)
  - Hypersensitivity [Unknown]
